FAERS Safety Report 8329684-2 (Version None)
Quarter: 2012Q2

REPORT INFORMATION
  Report Type: 
  Country: None (occurrence: None)
  Receive Date: 20120502
  Receipt Date: 20120425
  Transmission Date: 20120825
  Serious: Yes (Other)
  Sender: FDA-Public Use
  Company Number: US-VIIV HEALTHCARE LIMITED-A0975003A

PATIENT
  Age: 30 Year
  Sex: Female

DRUGS (3)
  1. COCAINE [Suspect]
     Indication: DRUG ABUSE
     Route: 065
  2. EPZICOM [Suspect]
     Indication: ANTIVIRAL TREATMENT
     Dosage: 1TAB PER DAY
     Route: 048
     Dates: start: 20110102, end: 20110309
  3. KALETRA [Suspect]
     Indication: ANTIVIRAL TREATMENT
     Dosage: 4TAB PER DAY
     Route: 048
     Dates: start: 20110102, end: 20110309

REACTIONS (2)
  - MATERNAL EXPOSURE DURING PREGNANCY [None]
  - STILLBIRTH [None]
